FAERS Safety Report 11308895 (Version 1)
Quarter: 2015Q3

REPORT INFORMATION
  Report Type: Spontaneous
  Country: US (occurrence: US)
  Receive Date: 20150724
  Receipt Date: 20150724
  Transmission Date: 20151125
  Serious: No
  Sender: FDA-Public Use
  Company Number: US-009507513-1507USA007501

PATIENT
  Sex: Female

DRUGS (3)
  1. ACHROMYCIN [Concomitant]
     Active Substance: TETRACYCLINE HYDROCHLORIDE
  2. PROVENTIL [Suspect]
     Active Substance: ALBUTEROL
     Indication: BRONCHOSPASM
     Dosage: UNK
  3. NUBAIN [Concomitant]
     Active Substance: NALBUPHINE HYDROCHLORIDE

REACTIONS (1)
  - Drug ineffective [Unknown]
